FAERS Safety Report 6484350-3 (Version None)
Quarter: 2009Q4

REPORT INFORMATION
  Report Type: 
  Country: None (occurrence: None)
  Receive Date: 20091209
  Receipt Date: 20091126
  Transmission Date: 20100525
  Serious: Yes (Other)
  Sender: FDA-Public Use
  Company Number: CHPA2009JP22563

PATIENT
  Sex: Female

DRUGS (2)
  1. NICOTINELL TTS (NCH) [Suspect]
     Indication: SMOKING CESSATION THERAPY
     Dosage: 21 MG, QD
     Route: 062
  2. DRUG THERAPY NOS [Concomitant]
     Indication: MENTAL DISORDER

REACTIONS (1)
  - SUICIDAL IDEATION [None]
